FAERS Safety Report 6930623-7 (Version None)
Quarter: 2010Q3

REPORT INFORMATION
  Report Type: 
  Country: None (occurrence: None)
  Receive Date: 20100813
  Receipt Date: 20100805
  Transmission Date: 20110219
  Serious: Yes (Hospitalization)
  Sender: FDA-Public Use
  Company Number: 230144J08CAN

PATIENT
  Age: 55 Year
  Sex: Male

DRUGS (3)
  1. REBIF [Suspect]
     Indication: RELAPSING-REMITTING MULTIPLE SCLEROSIS
     Dosage: 11 MCG
     Dates: start: 20070119, end: 20070401
  2. TYLENOL (COTYLENOL) [Concomitant]
  3. ADVIL LIQUI-GELS [Concomitant]

REACTIONS (6)
  - HEADACHE [None]
  - IRRITABILITY [None]
  - MALAISE [None]
  - PANCREATITIS [None]
  - PRODUCT FORMULATION ISSUE [None]
  - PYREXIA [None]
